FAERS Safety Report 8074174-8 (Version None)
Quarter: 2011Q4

REPORT INFORMATION
  Report Type: 
  Country: None (occurrence: None)
  Receive Date: 20111221
  Receipt Date: 20110418
  Transmission Date: 20120403
  Serious: Yes (Disabling)
  Sender: FDA-Public Use
  Company Number: PHEH2009US11274

PATIENT
  Age: 41 Year
  Sex: Female

DRUGS (5)
  1. EXJADE [Suspect]
     Indication: SICKLE CELL ANAEMIA
     Dosage: 1250 MG, QD, ORAL
     Route: 048
     Dates: start: 20090605, end: 20100924
  2. EXJADE [Suspect]
     Indication: IRON OVERLOAD
     Dosage: 1250 MG, QD, ORAL
     Route: 048
     Dates: start: 20090605, end: 20100924
  3. ASPIRIN [Concomitant]
  4. HYDROL (GLUCOSE, POTASSIUM CHLORIDE, SODIUM CHLORIDE, SODIUM CITRATE) [Concomitant]
  5. FOLIC ACID (FOILC ACID) [Concomitant]

REACTIONS (2)
  - RENAL IMPAIRMENT [None]
  - DIARRHOEA [None]
